FAERS Safety Report 20777907 (Version 4)
Quarter: 2022Q2

REPORT INFORMATION
  Report Type: Spontaneous
  Country: ES (occurrence: ES)
  Receive Date: 20220503
  Receipt Date: 20220602
  Transmission Date: 20220720
  Serious: Yes (Death, Hospitalization, Other)
  Sender: FDA-Public Use
  Company Number: None

PATIENT
  Age: 77 Year
  Sex: Female

DRUGS (6)
  1. OMEPRAZOLE [Suspect]
     Active Substance: OMEPRAZOLE
     Indication: Product used for unknown indication
     Dosage: START DATE: 2021
     Route: 065
     Dates: end: 2021
  2. HYDROCHLOROTHIAZIDE\LOSARTAN [Suspect]
     Active Substance: HYDROCHLOROTHIAZIDE\LOSARTAN
     Indication: Hypertension
     Dosage: START DATE: 2021
     Route: 065
     Dates: end: 2021
  3. CEFUROXIME [Suspect]
     Active Substance: CEFUROXIME
     Indication: Product used for unknown indication
     Dosage: START DATE: 2021
     Route: 065
     Dates: end: 2021
  4. BROMAZEPAM [Suspect]
     Active Substance: BROMAZEPAM
     Indication: Anxiety
     Dosage: START DATE: 2021
     Route: 065
     Dates: end: 2021
  5. COMIRNATY [Suspect]
     Active Substance: TOZINAMERAN
     Indication: COVID-19 immunisation
     Dosage: 2 DOSES ADMINISTERED - SITE OF ADMINISTRATION: UNKNOWN
     Route: 065
     Dates: start: 20210406, end: 20210406
  6. COMIRNATY [Suspect]
     Active Substance: TOZINAMERAN
     Dosage: UNK (2 DOSES ADMINISTERED - SITE OF ADMINISTRATION: UNKNOWN)
     Route: 065
     Dates: start: 20210427, end: 20210427

REACTIONS (5)
  - Hepatitis toxic [Fatal]
  - Hepatitis acute [Fatal]
  - Jaundice [Unknown]
  - Nausea [Unknown]
  - Vomiting [Unknown]

NARRATIVE: CASE EVENT DATE: 20210429
